FAERS Safety Report 4355858-1 (Version None)
Quarter: 2004Q2

REPORT INFORMATION
  Report Type: 
  Country: None (occurrence: None)
  Receive Date: 20040505
  Receipt Date: 20040426
  Transmission Date: 20050107
  Serious: Yes (Other)
  Sender: FDA-Public Use
  Company Number: GBWYE727027APR04

PATIENT
  Age: 18 Year
  Sex: Male

DRUGS (1)
  1. MINOCIN [Suspect]
     Indication: ACNE
     Dosage: 100 MG, ORAL
     Route: 048
     Dates: start: 20040413, end: 20040416

REACTIONS (2)
  - EYELID OEDEMA [None]
  - SWELLING FACE [None]
